FAERS Safety Report 5318121-8 (Version None)
Quarter: 2007Q2

REPORT INFORMATION
  Report Type: 
  Country: None (occurrence: None)
  Receive Date: 20070507
  Receipt Date: 20070423
  Transmission Date: 20071010
  Serious: Yes (Hospitalization)
  Sender: FDA-Public Use
  Company Number: JP-ROCHE-489057

PATIENT
  Age: 10 Year
  Sex: Male
  Weight: 50 kg

DRUGS (12)
  1. TAMIFLU [Suspect]
     Indication: INFLUENZA
     Route: 048
     Dates: start: 20070317, end: 20070317
  2. TAMIFLU [Suspect]
     Dosage: FORM: DRY SYRUP 3%.
     Route: 048
     Dates: start: 20070315, end: 20070315
  3. TAMIFLU [Suspect]
     Route: 048
     Dates: start: 20070316, end: 20070316
  4. TOMIRON [Concomitant]
     Dosage: GENERIC REPORTED AS CEFTERAM PIVOXIL.
     Route: 048
     Dates: start: 20070315
  5. THIATON [Concomitant]
     Route: 048
     Dates: start: 20070315
  6. BIOFERMIN R [Concomitant]
     Route: 048
     Dates: start: 20070315
  7. PRIMPERAN INJ [Concomitant]
     Route: 048
     Dates: start: 20070315
  8. CALONAL [Concomitant]
     Dosage: GENERIC REPORTED AS ACETAMINOPHEN.
     Route: 048
     Dates: start: 20070315
  9. HUSTAZOL [Concomitant]
     Dosage: GENERIC REPORTED AS CLOPERASTINE FENDIZOATE.
     Route: 048
     Dates: start: 20070317
  10. KIMO TAB [Concomitant]
     Route: 048
     Dates: start: 20070315
  11. SOLITA-T3 [Concomitant]
     Route: 041
     Dates: start: 20070316
  12. PRIMPERAN INJ [Concomitant]
     Route: 041
     Dates: start: 20070316

REACTIONS (2)
  - HALLUCINATION, AUDITORY [None]
  - TORTICOLLIS [None]
